FAERS Safety Report 25924819 (Version 2)
Quarter: 2025Q4

REPORT INFORMATION
  Report Type: Spontaneous
  Country: JP (occurrence: JP)
  Receive Date: 20251015
  Receipt Date: 20251124
  Transmission Date: 20260117
  Serious: Yes (Other)
  Sender: JOHNSON AND JOHNSON
  Company Number: JP-JNJFOC-20251011144

PATIENT

DRUGS (2)
  1. EVITHROM [Suspect]
     Active Substance: HUMAN THROMBIN
     Indication: Haemostasis
     Route: 061
     Dates: start: 20250708, end: 20250708
  2. Surgiflo 5094 [Concomitant]
     Indication: Product used for unknown indication

REACTIONS (1)
  - Pulmonary embolism [Recovering/Resolving]

NARRATIVE: CASE EVENT DATE: 20250714
